FAERS Safety Report 16237238 (Version 1)
Quarter: 2019Q2

REPORT INFORMATION
  Report Type: Spontaneous
  Country: US (occurrence: US)
  Receive Date: 20190422
  Receipt Date: 20190422
  Transmission Date: 20190711
  Serious: Yes (Other)
  Sender: FDA-Public Use
  Company Number: None

PATIENT
  Age: 64 Year

DRUGS (1)
  1. CANNABIS BUD/FLOWER [Suspect]
     Active Substance: CANNABIS SATIVA SUBSP. INDICA TOP
     Indication: SUBSTANCE USE

REACTIONS (5)
  - Product odour abnormal [None]
  - Cough [None]
  - Bronchitis [None]
  - Herbal toxicity [None]
  - Poisoning deliberate [None]

NARRATIVE: CASE EVENT DATE: 20190401
